FAERS Safety Report 9735929 (Version 1)
Quarter: 2013Q4

REPORT INFORMATION
  Report Type: Spontaneous
  Country: US (occurrence: None)
  Receive Date: 20131204
  Receipt Date: 20131204
  Transmission Date: 20140711
  Serious: Yes (Life-Threatening, Hospitalization)
  Sender: FDA-Public Use
  Company Number: 2013P1021456

PATIENT
  Age: 60 Year
  Sex: Male

DRUGS (1)
  1. FENTANYL [Suspect]
     Indication: PAIN
     Dosage: ;Q72H;TDER
     Route: 062

REACTIONS (5)
  - Dyspnoea [None]
  - Thrombocytopenia [None]
  - Renal failure [None]
  - Subdural haematoma [None]
  - Tonic convulsion [None]
